FAERS Safety Report 15547466 (Version 3)
Quarter: 2019Q4

REPORT INFORMATION
  Report Type: Spontaneous
  Country: US (occurrence: US)
  Receive Date: 20181024
  Receipt Date: 20191028
  Transmission Date: 20200122
  Serious: No
  Sender: FDA-Public Use
  Company Number: US-SA-2018SA293631

PATIENT
  Age: 65 Year
  Sex: Female
  Weight: 136.05 kg

DRUGS (4)
  1. AUBAGIO [Suspect]
     Active Substance: TERIFLUNOMIDE
     Indication: MULTIPLE SCLEROSIS
     Dosage: 14 MG, QD
     Route: 048
  2. BIOTIN [Concomitant]
     Active Substance: BIOTIN
     Dosage: UNK
  3. CURCUMIN [Concomitant]
     Active Substance: CURCUMIN
  4. VITAMIN D3 [Concomitant]
     Active Substance: CHOLECALCIFEROL
     Dosage: UNK

REACTIONS (3)
  - Depression [Unknown]
  - Product dose omission [Unknown]
  - Alopecia [Recovered/Resolved]
